FAERS Safety Report 11799742 (Version 1)
Quarter: 2015Q4

REPORT INFORMATION
  Report Type: Spontaneous
  Country: IT (occurrence: IT)
  Receive Date: 20151203
  Receipt Date: 20151203
  Transmission Date: 20160305
  Serious: Yes (Other)
  Sender: FDA-Public Use
  Company Number: PHHY2015IT154963

PATIENT
  Age: 32 Year
  Sex: Female

DRUGS (3)
  1. EFFERALGAN [Suspect]
     Active Substance: ACETAMINOPHEN
     Indication: ABDOMINAL PAIN
     Route: 065
     Dates: start: 20150204, end: 20150204
  2. CIPROFLOXACIN. [Suspect]
     Active Substance: CIPROFLOXACIN
     Indication: ABDOMINAL PAIN
     Route: 065
     Dates: start: 20150204, end: 20150204
  3. BUSCOFEN [Suspect]
     Active Substance: IBUPROFEN SODIUM
     Indication: ABDOMINAL PAIN
     Route: 065
     Dates: start: 20150204, end: 20150204

REACTIONS (3)
  - Vertigo [Recovering/Resolving]
  - Bradycardia [Recovering/Resolving]
  - Syncope [Recovering/Resolving]

NARRATIVE: CASE EVENT DATE: 20150204
